FAERS Safety Report 17951590 (Version 1)
Quarter: 2020Q2

REPORT INFORMATION
  Report Type: Spontaneous
  Country: US (occurrence: US)
  Receive Date: 20200626
  Receipt Date: 20200626
  Transmission Date: 20200714
  Serious: No
  Sender: FDA-Public Use
  Company Number: US-ASTRAZENECA-2020SE79889

PATIENT
  Age: 85 Year
  Sex: Male

DRUGS (1)
  1. NEXIUM 24HR [Suspect]
     Active Substance: ESOMEPRAZOLE MAGNESIUM
     Dosage: UNKNOWN
     Route: 048

REACTIONS (5)
  - Poor quality product administered [Unknown]
  - Oral discomfort [Unknown]
  - Lip swelling [Unknown]
  - Product physical issue [Unknown]
  - Lip discolouration [Unknown]

NARRATIVE: CASE EVENT DATE: 20200618
